FAERS Safety Report 10501724 (Version 1)
Quarter: 2014Q4

REPORT INFORMATION
  Report Type: Spontaneous
  Country: IT (occurrence: IT)
  Receive Date: 20141007
  Receipt Date: 20141007
  Transmission Date: 20150528
  Serious: Yes (Hospitalization)
  Sender: FDA-Public Use
  Company Number: IT-TEVA-512918ISR

PATIENT
  Age: 60 Year
  Sex: Female

DRUGS (2)
  1. DALMADORM - 30 MG CAPSULE - MEDA PHARMA S.P.A. [Suspect]
     Active Substance: FLURAZEPAM\FLURAZEPAM HYDROCHLORIDE
     Indication: SUICIDE ATTEMPT
     Dosage: 28 TABLET DAILY; 28 TABLETS TOTAL
     Route: 048
     Dates: start: 20140713, end: 20140713
  2. PAROXETINE [Suspect]
     Active Substance: PAROXETINE\PAROXETINE HYDROCHLORIDE
     Indication: SUICIDE ATTEMPT
     Dosage: 200 MG TOTAL (10 TABLETS OF 20MG)
     Route: 048
     Dates: start: 20140713, end: 20140713

REACTIONS (3)
  - Bradyphrenia [Recovering/Resolving]
  - Bradykinesia [Recovering/Resolving]
  - Drug abuse [Recovering/Resolving]

NARRATIVE: CASE EVENT DATE: 20140713
